FAERS Safety Report 7618641-7 (Version None)
Quarter: 2011Q3

REPORT INFORMATION
  Report Type: 
  Country: None (occurrence: None)
  Receive Date: 20110718
  Receipt Date: 20110630
  Transmission Date: 20111222
  Serious: Yes (Other)
  Sender: FDA-Public Use
  Company Number: US-BAYER-2011-007573

PATIENT
  Age: 16 Year
  Sex: Female
  Weight: 54.875 kg

DRUGS (2)
  1. YASMIN [Suspect]
     Indication: ACNE
     Dosage: UNK
     Route: 048
     Dates: start: 20040501
  2. YASMIN [Suspect]
     Indication: DYSFUNCTIONAL UTERINE BLEEDING

REACTIONS (6)
  - BLINDNESS UNILATERAL [None]
  - PAIN [None]
  - VISUAL IMPAIRMENT [None]
  - RETINAL ARTERY OCCLUSION [None]
  - MENTAL DISORDER [None]
  - EMOTIONAL DISORDER [None]
